FAERS Safety Report 6502679-7 (Version None)
Quarter: 2009Q4

REPORT INFORMATION
  Report Type: 
  Country: None (occurrence: None)
  Receive Date: 20091127
  Receipt Date: 20090729
  Transmission Date: 20100525
  Serious: No
  Sender: FDA-Public Use
  Company Number: 001386

PATIENT
  Sex: Female

DRUGS (2)
  1. LACOSAMIDE [Suspect]
  2. ANTIEPILEPTICS [Concomitant]

REACTIONS (2)
  - NAUSEA [None]
  - VOMITING [None]
